FAERS Safety Report 7760225-4 (Version None)
Quarter: 2011Q3

REPORT INFORMATION
  Report Type: 
  Country: None (occurrence: None)
  Receive Date: 20110919
  Receipt Date: 20110912
  Transmission Date: 20111222
  Serious: Yes (Other)
  Sender: FDA-Public Use
  Company Number: US-GLAXOSMITHKLINE-A0944353A

PATIENT
  Sex: Male
  Weight: 95.9 kg

DRUGS (15)
  1. TEKTURNA [Concomitant]
  2. SPIRIVA [Concomitant]
  3. FISH OIL [Concomitant]
  4. LIPITOR [Concomitant]
     Route: 065
  5. VOTRIENT [Suspect]
     Indication: PRODUCT USED FOR UNKNOWN INDICATION
     Dosage: 800MG PER DAY
  6. LEVOTHYROXINE SODIUM [Concomitant]
  7. ADVAIR DISKUS 100/50 [Concomitant]
  8. SINGULAIR [Concomitant]
  9. VITAMIN D [Concomitant]
  10. TYLENOL-500 [Concomitant]
  11. CELEBREX [Concomitant]
  12. TORSEMIDE [Concomitant]
  13. SULFAMETHOXAZOLE AND TRIMETHOPRIM DOUBLE STRENGTH [Concomitant]
  14. CENTRUM SILVER [Concomitant]
  15. MILK THISTLE [Concomitant]

REACTIONS (7)
  - NASOPHARYNGITIS [None]
  - PNEUMONIA [None]
  - DYSPNOEA [None]
  - FATIGUE [None]
  - COUGH [None]
  - INSOMNIA [None]
  - WHEEZING [None]
